FAERS Safety Report 7790699-4 (Version None)
Quarter: 2011Q3

REPORT INFORMATION
  Report Type: 
  Country: None (occurrence: None)
  Receive Date: 20110930
  Receipt Date: 20110923
  Transmission Date: 20111222
  Serious: Yes (Disabling)
  Sender: FDA-Public Use
  Company Number: BR-ABBOTT-11P-020-0857447-00

PATIENT
  Sex: Female
  Weight: 60 kg

DRUGS (3)
  1. HUMIRA [Suspect]
     Indication: RHEUMATOID ARTHRITIS
     Route: 058
  2. KETOPROFEN [Suspect]
     Indication: PRODUCT USED FOR UNKNOWN INDICATION
  3. DIACEREIN + PARACETAMOL [Concomitant]
     Indication: ARTHRALGIA
     Dosage: 50 MG + 60 MG, 1 CAPSULE, DAILY
     Route: 048

REACTIONS (4)
  - DRUG INEFFECTIVE [None]
  - BLOOD URINE PRESENT [None]
  - RHEUMATOID ARTHRITIS [None]
  - GAIT DISTURBANCE [None]
